FAERS Safety Report 11760409 (Version 2)
Quarter: 2015Q4

REPORT INFORMATION
  Report Type: Spontaneous
  Country: US (occurrence: US)
  Receive Date: 20151120
  Receipt Date: 20151214
  Transmission Date: 20160304
  Serious: No
  Sender: FDA-Public Use
  Company Number: ALCN2015US007076

PATIENT
  Age: 92 Year
  Sex: Female

DRUGS (2)
  1. NEVANAC [Suspect]
     Active Substance: NEPAFENAC
     Indication: INTRAOCULAR LENS IMPLANT
     Dosage: 1 GTT, BID
     Route: 047
     Dates: start: 20151104, end: 20151105
  2. LATANOPROST. [Suspect]
     Active Substance: LATANOPROST
     Indication: GLAUCOMA
     Dosage: 1 GTT, QD
     Route: 047
     Dates: start: 2015

REACTIONS (2)
  - Visual acuity reduced [Recovering/Resolving]
  - Corneal irritation [Recovering/Resolving]

NARRATIVE: CASE EVENT DATE: 20151104
